FAERS Safety Report 22647717 (Version 1)
Quarter: 2023Q2

REPORT INFORMATION
  Report Type: Spontaneous
  Country: JP (occurrence: JP)
  Receive Date: 20230628
  Receipt Date: 20230628
  Transmission Date: 20230722
  Serious: Yes (Death, Hospitalization, Other)
  Sender: FDA-Public Use
  Company Number: JP-AMGEN-JPNSP2023107456

PATIENT

DRUGS (10)
  1. EVENITY [Suspect]
     Active Substance: ROMOSOZUMAB-AQQG
     Indication: Osteoporosis
     Dosage: 210 MILLIGRAM, QMO
     Route: 065
  2. EVENITY [Suspect]
     Active Substance: ROMOSOZUMAB-AQQG
  3. DENOSUMAB [Suspect]
     Active Substance: DENOSUMAB
     Indication: Osteoporosis
     Dosage: 60 MILLIGRAM, Q6MO
     Route: 065
  4. ALENDRONATE SODIUM [Suspect]
     Active Substance: ALENDRONATE SODIUM
     Indication: Product used for unknown indication
     Dosage: 35 MILLIGRAM, QWK
     Route: 065
  5. ACTONEL [Suspect]
     Active Substance: RISEDRONATE SODIUM
     Indication: Product used for unknown indication
     Dosage: 17.5 MILLIGRAM, QWK
     Route: 065
  6. RISEDRONATE SODIUM [Suspect]
     Active Substance: RISEDRONATE SODIUM
     Indication: Product used for unknown indication
     Dosage: 17.5 MILLIGRAM, QWK
     Route: 065
  7. BONVIVA [Suspect]
     Active Substance: IBANDRONATE SODIUM
     Indication: Product used for unknown indication
     Dosage: 1 MILLIGRAM, QMO
     Route: 065
  8. RECLAST [Suspect]
     Active Substance: ZOLEDRONIC ACID
     Indication: Product used for unknown indication
     Dosage: 5 MILLIGRAM, EVERY YEAR
     Route: 065
  9. ELDECALCITOL [Suspect]
     Active Substance: ELDECALCITOL
     Indication: Product used for unknown indication
     Dosage: 0.75 MICROGRAM, QD
     Route: 065
  10. VIVIANT [Suspect]
     Active Substance: BAZEDOXIFENE
     Indication: Product used for unknown indication
     Route: 065

REACTIONS (17)
  - Illness [Fatal]
  - Spinal fracture [Unknown]
  - Femur fracture [Unknown]
  - Pelvic fracture [Unknown]
  - Tibia fracture [Unknown]
  - Ulna fracture [Unknown]
  - Sternal fracture [Unknown]
  - Fibula fracture [Unknown]
  - Foot fracture [Unknown]
  - Radius fracture [Unknown]
  - Pathological fracture [Unknown]
  - Nausea [Unknown]
  - Malaise [Unknown]
  - Pain [Unknown]
  - Hypertension [Unknown]
  - Dizziness [Unknown]
  - Pruritus [Unknown]
